FAERS Safety Report 15097458 (Version 1)
Quarter: 2018Q3

REPORT INFORMATION
  Report Type: Spontaneous
  Country: US (occurrence: US)
  Receive Date: 20180702
  Receipt Date: 20180702
  Transmission Date: 20181010
  Serious: No
  Sender: FDA-Public Use
  Company Number: US-MYLANLABS-2018M1045038

PATIENT
  Sex: Male
  Weight: 82 kg

DRUGS (1)
  1. FENTANYL TRANSDERMAL SYSTEM [Suspect]
     Active Substance: FENTANYL
     Indication: PAIN
     Dosage: UNK
     Route: 062

REACTIONS (6)
  - Skin odour abnormal [Recovered/Resolved]
  - Product adhesion issue [Unknown]
  - Skin exfoliation [Recovered/Resolved]
  - Wrong technique in product usage process [Not Recovered/Not Resolved]
  - Application site rash [Recovered/Resolved]
  - Application site pain [Not Recovered/Not Resolved]
